FAERS Safety Report 17000362 (Version 1)
Quarter: 2019Q4

REPORT INFORMATION
  Report Type: Spontaneous
  Country: US (occurrence: US)
  Receive Date: 20191106
  Receipt Date: 20191106
  Transmission Date: 20200122
  Serious: Yes (Life-Threatening, Hospitalization, Other)
  Sender: FDA-Public Use
  Company Number: US-BAYER-2019-198395

PATIENT
  Age: 28 Year
  Sex: Female

DRUGS (2)
  1. ASPIRIN (CARDIO) [Suspect]
     Active Substance: ASPIRIN
     Indication: HYPERTENSION
  2. ASPIRIN (CARDIO) [Suspect]
     Active Substance: ASPIRIN
     Indication: PRE-ECLAMPSIA
     Dosage: UNK

REACTIONS (8)
  - Maternal exposure during pregnancy [None]
  - Contraindicated product administered [None]
  - Product monitoring error [None]
  - Posterior reversible encephalopathy syndrome [Recovered/Resolved with Sequelae]
  - Off label use [None]
  - HELLP syndrome [None]
  - Premature labour [None]
  - Drug ineffective for unapproved indication [None]
